FAERS Safety Report 22342421 (Version 3)
Quarter: 2023Q2

REPORT INFORMATION
  Report Type: Report from Study
  Country: US (occurrence: US)
  Receive Date: 20230519
  Receipt Date: 20230531
  Transmission Date: 20230722
  Serious: Yes (Hospitalization)
  Sender: FDA-Public Use
  Company Number: US-JNJFOC-20230544787

PATIENT
  Age: 21 Year
  Sex: Male

DRUGS (5)
  1. INFLIXIMAB [Suspect]
     Active Substance: INFLIXIMAB
     Indication: Inflammatory bowel disease
     Route: 041
     Dates: start: 20060127, end: 20100712
  2. CANAKINUMAB [Concomitant]
     Active Substance: CANAKINUMAB
     Route: 065
     Dates: start: 20210220, end: 202211
  3. CANAKINUMAB [Concomitant]
     Active Substance: CANAKINUMAB
     Route: 065
     Dates: end: 202211
  4. CANAKINUMAB [Concomitant]
     Active Substance: CANAKINUMAB
     Route: 065
     Dates: start: 202106, end: 202211
  5. RINVOQ [Concomitant]
     Active Substance: UPADACITINIB
     Dates: start: 202208

REACTIONS (2)
  - Crohn^s disease [Recovered/Resolved with Sequelae]
  - Sepsis [Recovered/Resolved]

NARRATIVE: CASE EVENT DATE: 20221122
